FAERS Safety Report 18034326 (Version 1)
Quarter: 2020Q3

REPORT INFORMATION
  Report Type: Spontaneous
  Country: KR (occurrence: KR)
  Receive Date: 20200716
  Receipt Date: 20200716
  Transmission Date: 20201103
  Serious: Yes (Other)
  Sender: FDA-Public Use
  Company Number: KR-GLAXOSMITHKLINE-KR2020GSK124281

PATIENT
  Age: 32 Year
  Sex: Female

DRUGS (4)
  1. VALPROIC ACID. [Interacting]
     Active Substance: VALPROIC ACID
     Indication: PARTIAL SEIZURES
     Dosage: 600 MG/DAY
     Route: 048
  2. VALPROIC ACID. [Interacting]
     Active Substance: VALPROIC ACID
     Indication: PARTIAL SEIZURES
     Dosage: 30 MG/ KG BOLUS
     Route: 042
  3. LAMOTRIGINE. [Suspect]
     Active Substance: LAMOTRIGINE
     Indication: TEMPORAL LOBE EPILEPSY
     Dosage: 450 MG/DAY
  4. VALPROIC ACID. [Interacting]
     Active Substance: VALPROIC ACID
     Dosage: 1800 MG
     Route: 042

REACTIONS (13)
  - Drug interaction [Unknown]
  - Nausea [Recovered/Resolved]
  - Toxicity to various agents [Recovered/Resolved]
  - Neurotoxicity [Recovered/Resolved]
  - Altered state of consciousness [Recovered/Resolved]
  - Nystagmus [Recovered/Resolved]
  - Partial seizures [Recovered/Resolved]
  - Dizziness [Recovered/Resolved]
  - Vertigo [Recovered/Resolved]
  - Head titubation [Recovered/Resolved]
  - Somnolence [Recovered/Resolved]
  - Vision blurred [Recovered/Resolved]
  - Ataxia [Recovered/Resolved]
